FAERS Safety Report 9619378 (Version 2)
Quarter: 2013Q4

REPORT INFORMATION
  Report Type: Report from Study
  Country: CN (occurrence: CN)
  Receive Date: 20131014
  Receipt Date: 20131014
  Transmission Date: 20140711
  Serious: Yes (Life-Threatening, Other)
  Sender: FDA-Public Use
  Company Number: CN-ROCHE-1263924

PATIENT
  Age: 60 Year
  Sex: Female
  Weight: 56 kg

DRUGS (1)
  1. AVASTIN [Suspect]
     Indication: COLON CANCER
     Route: 042
     Dates: start: 20121010

REACTIONS (5)
  - Platelet count decreased [Unknown]
  - Arrhythmia [Unknown]
  - White blood cell count decreased [Unknown]
  - Blood pressure decreased [Unknown]
  - Syncope [Recovered/Resolved]
